FAERS Safety Report 14723456 (Version 15)
Quarter: 2019Q2

REPORT INFORMATION
  Report Type: Report from Study
  Country: BR (occurrence: BR)
  Receive Date: 20180405
  Receipt Date: 20190624
  Transmission Date: 20190711
  Serious: Yes (Death, Life-Threatening, Hospitalization)
  Sender: FDA-Public Use
  Company Number: BR-CELGENEUS-USA-20180308539

PATIENT
  Age: 53 Year
  Sex: Female
  Weight: 52.6 kg

DRUGS (23)
  1. PEMBROLIZUMAB (MK-3475) [Suspect]
     Active Substance: PEMBROLIZUMAB
     Indication: TRIPLE NEGATIVE BREAST CANCER
     Dosage: 200 MILLIGRAM
     Route: 041
     Dates: start: 20180122, end: 20180122
  2. CODEINE [Concomitant]
     Active Substance: CODEINE
     Indication: PRODUCT USED FOR UNKNOWN INDICATION
     Dosage: 30 MILLIGRAM
     Route: 048
     Dates: start: 20180214, end: 20180315
  3. DIPYRONE [Concomitant]
     Active Substance: DIPYRONE
     Indication: PROPHYLAXIS
     Dosage: 500 MILLIGRAM
     Route: 048
     Dates: start: 20171205, end: 20180315
  4. DEXTROSE. [Concomitant]
     Active Substance: DEXTROSE
     Indication: HYPOGLYCAEMIA
     Route: 065
  5. DEXAMETHASONE. [Concomitant]
     Active Substance: DEXAMETHASONE
     Indication: PRODUCT USED FOR UNKNOWN INDICATION
     Dosage: 4 MILLIGRAM
     Route: 048
     Dates: start: 20180305, end: 20180315
  6. CEFTRIAXONE. [Concomitant]
     Active Substance: CEFTRIAXONE
     Indication: PRODUCT USED FOR UNKNOWN INDICATION
     Route: 065
  7. PAPAIN [Concomitant]
     Active Substance: PAPAIN
     Indication: INFECTED NEOPLASM
     Route: 065
  8. ABRAXANE [Suspect]
     Active Substance: PACLITAXEL
     Indication: TRIPLE NEGATIVE BREAST CANCER
     Dosage: 100 MILLIGRAM/SQ. METER
     Route: 041
     Dates: start: 20180122, end: 20180219
  9. CLINDAMYCIN. [Concomitant]
     Active Substance: CLINDAMYCIN
     Indication: PRODUCT USED FOR UNKNOWN INDICATION
     Dosage: 300 MILLIGRAM
     Route: 048
     Dates: start: 20180116, end: 20180315
  10. LOSARTAN POTASSIUM. [Concomitant]
     Active Substance: LOSARTAN POTASSIUM
     Indication: PRODUCT USED FOR UNKNOWN INDICATION
     Dosage: 50 MILLIGRAM
     Route: 048
     Dates: start: 20180116, end: 20180315
  11. RED BLOOD CELLS [Concomitant]
     Active Substance: HUMAN RED BLOOD CELL
     Indication: PRODUCT USED FOR UNKNOWN INDICATION
     Dosage: 3 DOSAGE FORMS
     Route: 065
     Dates: start: 20180316, end: 20180316
  12. METRONIDAZOLE. [Concomitant]
     Active Substance: METRONIDAZOLE
     Indication: PRODUCT USED FOR UNKNOWN INDICATION
     Dosage: 10 MILLIGRAM
     Route: 065
     Dates: start: 20171227, end: 20180215
  13. CIPROFLOXACIN. [Concomitant]
     Active Substance: CIPROFLOXACIN
     Indication: PRODUCT USED FOR UNKNOWN INDICATION
     Dosage: 500 MILLIGRAM
     Route: 048
     Dates: start: 20180116, end: 20180315
  14. ONDANSETRON [Concomitant]
     Active Substance: ONDANSETRON
     Indication: PROPHYLAXIS OF NAUSEA AND VOMITING
     Route: 065
  15. BROMOPRIDE [Concomitant]
     Active Substance: BROMOPRIDE
     Indication: PROPHYLAXIS AGAINST GASTROINTESTINAL ULCER
     Dosage: 10 MILLIGRAM
     Route: 065
     Dates: start: 20180316, end: 20180316
  16. ACETAMINOPHEN. [Concomitant]
     Active Substance: ACETAMINOPHEN
     Indication: PYREXIA
     Route: 065
  17. ABRAXANE [Suspect]
     Active Substance: PACLITAXEL
     Dosage: 100 MILLIGRAM/SQ. METER
     Route: 041
     Dates: start: 20180226, end: 20180226
  18. NYSTATIN. [Concomitant]
     Active Substance: NYSTATIN
     Indication: INFECTED NEOPLASM
     Route: 065
  19. PEMBROLIZUMAB (MK-3475) [Suspect]
     Active Substance: PEMBROLIZUMAB
     Dosage: 200 MILLIGRAM
     Route: 041
     Dates: start: 20180214, end: 20180214
  20. OMEPRAZOLE. [Concomitant]
     Active Substance: OMEPRAZOLE
     Indication: PROPHYLAXIS AGAINST GASTROINTESTINAL ULCER
     Dosage: 20 MILLIGRAM
     Route: 048
     Dates: start: 20171205, end: 20180315
  21. OMEPRAZOLE. [Concomitant]
     Active Substance: OMEPRAZOLE
     Dosage: 40 MILLIGRAM
     Route: 065
     Dates: start: 20180316, end: 20180316
  22. ZINC OXIDE. [Concomitant]
     Active Substance: ZINC OXIDE
     Indication: INFECTED NEOPLASM
     Route: 065
  23. ENOXAPARIN SODIUM. [Concomitant]
     Active Substance: ENOXAPARIN SODIUM
     Indication: DEEP VEIN THROMBOSIS
     Route: 065

REACTIONS (2)
  - Sepsis [Not Recovered/Not Resolved]
  - Septic shock [Fatal]

NARRATIVE: CASE EVENT DATE: 20180316
